FAERS Safety Report 6068513-7 (Version None)
Quarter: 2009Q1

REPORT INFORMATION
  Report Type: 
  Country: None (occurrence: None)
  Receive Date: 20090206
  Receipt Date: 20090127
  Transmission Date: 20090719
  Serious: Yes (Other)
  Sender: FDA-Public Use
  Company Number: US-JNJFOC-20090106836

PATIENT
  Sex: Female
  Weight: 81.65 kg

DRUGS (4)
  1. REMICADE [Suspect]
     Indication: CROHN'S DISEASE
     Route: 042
  2. HUMIRA [Suspect]
     Indication: CROHN'S DISEASE
     Route: 058
  3. CIMZIA [Concomitant]
     Indication: CROHN'S DISEASE
  4. LIALDA [Concomitant]
     Indication: ANTIINFLAMMATORY THERAPY
     Route: 048

REACTIONS (6)
  - ABDOMINAL PAIN [None]
  - ANAPHYLACTIC SHOCK [None]
  - ARTHRALGIA [None]
  - IMPAIRED HEALING [None]
  - MIGRAINE [None]
  - RECTAL HAEMORRHAGE [None]
